FAERS Safety Report 4476497-8 (Version None)
Quarter: 2004Q4

REPORT INFORMATION
  Report Type: 
  Country: None (occurrence: None)
  Receive Date: 20041012
  Receipt Date: 20040928
  Transmission Date: 20050328
  Serious: Yes (Other)
  Sender: FDA-Public Use
  Company Number: 2004072564

PATIENT
  Age: 36 Year
  Sex: Female
  Weight: 65.318 kg

DRUGS (1)
  1. ZOLOFT [Suspect]
     Indication: DEPRESSION
     Dosage: ORAL
     Route: 048

REACTIONS (9)
  - ANAEMIA [None]
  - CAESAREAN SECTION [None]
  - DEPRESSION [None]
  - DIZZINESS [None]
  - DRUG EXPOSURE DURING PREGNANCY [None]
  - HYPOAESTHESIA [None]
  - PREGNANCY [None]
  - URINARY TRACT INFECTION [None]
  - UTERINE LEIOMYOMA [None]
